FAERS Safety Report 4686954-7 (Version None)
Quarter: 2005Q2

REPORT INFORMATION
  Report Type: 
  Country: None (occurrence: None)
  Receive Date: 20050608
  Receipt Date: 20050518
  Transmission Date: 20051028
  Serious: No
  Sender: FDA-Public Use
  Company Number: USA050598494

PATIENT
  Age: 16 Year
  Sex: Male
  Weight: 114 kg

DRUGS (1)
  1. STRATTERA [Suspect]
     Indication: ATTENTION DEFICIT/HYPERACTIVITY DISORDER
     Dosage: 60 MG DAY
     Dates: start: 20040801

REACTIONS (2)
  - ALANINE AMINOTRANSFERASE INCREASED [None]
  - HEPATIC ENZYME INCREASED [None]
